FAERS Safety Report 19385353 (Version 1)
Quarter: 2021Q2

REPORT INFORMATION
  Report Type: Report from Study
  Country: None (occurrence: CO)
  Receive Date: 20210607
  Receipt Date: 20210607
  Transmission Date: 20210717
  Serious: Yes (Hospitalization)
  Sender: FDA-Public Use
  Company Number: CO-TAKEDA-CO201511094

PATIENT
  Age: 37 Year
  Sex: Female
  Weight: 60 kg

DRUGS (1)
  1. VELAGLUCERASE ALFA [Suspect]
     Active Substance: VELAGLUCERASE ALFA
     Indication: GAUCHER^S DISEASE
     Dosage: 3200 INTERNATIONAL UNIT, EVERY 15 DAYS
     Route: 042
     Dates: start: 20131004

REACTIONS (5)
  - Erythema [Recovering/Resolving]
  - Weight increased [Unknown]
  - Varicose vein [Recovering/Resolving]
  - Product formulation issue [Unknown]
  - Varicophlebitis [Recovering/Resolving]

NARRATIVE: CASE EVENT DATE: 20150826
